FAERS Safety Report 8727961 (Version 2)
Quarter: 2012Q4

REPORT INFORMATION
  Report Type: 
  Country: FR (occurrence: FR)
  Receive Date: 20120816
  Receipt Date: 20120920
  Transmission Date: 20130627
  Serious: Yes (Hospitalization)
  Sender: FDA-Public Use
  Company Number: PHHY2012FR069360

PATIENT
  Age: 78 Year
  Sex: Female

DRUGS (6)
  1. LOXEN [Suspect]
     Dosage: 2 DF, DAILY
     Route: 048
     Dates: start: 201204
  2. PARACETAMOL [Suspect]
     Dosage: 3 DF, daily
     Route: 048
  3. RENITEC [Suspect]
     Route: 048
     Dates: end: 20120704
  4. DETENSIEL [Suspect]
     Dosage: 1 DF, daily
     Route: 048
  5. LANTUS [Suspect]
     Dosage: 2 subcutaneous inj daily
     Route: 058
  6. PARIET [Suspect]
     Dates: start: 201204, end: 20120704

REACTIONS (5)
  - Dysgeusia [Recovered/Resolved]
  - Weight decreased [Recovered/Resolved]
  - Decreased appetite [Recovered/Resolved]
  - Nausea [Recovered/Resolved]
  - Vomiting [Recovered/Resolved]
